FAERS Safety Report 10197194 (Version 1)
Quarter: 2014Q2

REPORT INFORMATION
  Report Type: Spontaneous
  Country: US (occurrence: None)
  Receive Date: 20140523
  Receipt Date: 20140523
  Transmission Date: 20141212
  Serious: Yes (Disabling)
  Sender: FDA-Public Use
  Company Number: None

PATIENT
  Sex: 0

DRUGS (1)
  1. AMBIEN [Suspect]

REACTIONS (8)
  - Drug dependence [None]
  - Increased appetite [None]
  - Amnesia [None]
  - Dysarthria [None]
  - Stupor [None]
  - Cognitive disorder [None]
  - Nuclear magnetic resonance imaging brain abnormal [None]
  - Motor dysfunction [None]
